FAERS Safety Report 12768688 (Version 1)
Quarter: 2016Q3

REPORT INFORMATION
  Report Type: Spontaneous
  Country: US (occurrence: US)
  Receive Date: 20160921
  Receipt Date: 20160921
  Transmission Date: 20161109
  Serious: Yes (Other)
  Sender: FDA-Public Use
  Company Number: US-UNITED THERAPEUTICS-UNT-2016-014509

PATIENT
  Age: 71 Year
  Sex: Male
  Weight: 63.49 kg

DRUGS (1)
  1. REMODULIN [Suspect]
     Active Substance: TREPROSTINIL
     Indication: PULMONARY HYPERTENSION
     Dosage: 0.052 ?G/KG, CONTINUING
     Route: 058
     Dates: start: 20110928

REACTIONS (3)
  - Prostate cancer [Unknown]
  - Urinary tract infection [Unknown]
  - Infusion site pain [Unknown]

NARRATIVE: CASE EVENT DATE: 201609
